FAERS Safety Report 7824241-6 (Version None)
Quarter: 2011Q4

REPORT INFORMATION
  Report Type: 
  Country: None (occurrence: None)
  Receive Date: 20111019
  Receipt Date: 20111005
  Transmission Date: 20120403
  Serious: Yes (Hospitalization)
  Sender: FDA-Public Use
  Company Number: FR-SANOFI-AVENTIS-2011SA065111

PATIENT
  Age: 87 Year
  Sex: Female
  Weight: 73 kg

DRUGS (8)
  1. TINZAPARIN SODIUM [Suspect]
     Indication: DEEP VEIN THROMBOSIS
     Route: 058
     Dates: start: 20110616, end: 20110715
  2. LEXOMIL [Concomitant]
     Indication: ANXIETY
     Route: 048
  3. SPECIAFOLDINE [Concomitant]
     Indication: VITAMIN B COMPLEX DEFICIENCY
     Route: 048
  4. ACETAMINOPHEN [Concomitant]
     Indication: PAIN
     Route: 048
  5. ALDACTONE [Suspect]
     Route: 048
  6. PANTOPRAZOLE [Concomitant]
     Route: 048
  7. LEVOTHYROXINE SODIUM [Concomitant]
     Indication: HYPOTHYROIDISM
     Route: 048
  8. LASIX [Suspect]
     Route: 048

REACTIONS (3)
  - HAEMATOMA [None]
  - ANAEMIA [None]
  - HYPERKALAEMIA [None]
